FAERS Safety Report 5485026-1 (Version None)
Quarter: 2007Q4

REPORT INFORMATION
  Report Type: 
  Country: None (occurrence: None)
  Receive Date: 20071015
  Receipt Date: 20071004
  Transmission Date: 20080405
  Serious: Yes (Other)
  Sender: FDA-Public Use
  Company Number: PHBS2007JP13316

PATIENT
  Age: 70 Year
  Sex: Male

DRUGS (6)
  1. TEGRETOL [Suspect]
     Indication: TEMPORAL LOBE EPILEPSY
     Dosage: 200 MG, BID
     Route: 048
     Dates: start: 20060920, end: 20070821
  2. TEGRETOL [Suspect]
     Dosage: 300 MG/DAY
     Route: 048
     Dates: start: 20070822, end: 20070919
  3. MEILAX [Concomitant]
     Dosage: 1 MG/DAY
     Route: 048
     Dates: start: 20031006
  4. MEILAX [Concomitant]
     Dosage: 1 MG/DAY
     Route: 065
     Dates: start: 20040101
  5. HANGE-SHASHIN-TO [Concomitant]
     Indication: STOMACH DISCOMFORT
     Dosage: 2.5 G/DAY
     Route: 048
     Dates: start: 20050511
  6. AMOXICILLIN [Concomitant]
     Indication: STOMACH DISCOMFORT
     Dosage: 1.3 G/DAY
     Route: 048
     Dates: start: 20050831

REACTIONS (2)
  - DEAFNESS UNILATERAL [None]
  - DIPLOPIA [None]
